FAERS Safety Report 7926362-6 (Version None)
Quarter: 2011Q4

REPORT INFORMATION
  Report Type: 
  Country: None (occurrence: None)
  Receive Date: 20111118
  Receipt Date: 20111107
  Transmission Date: 20120403
  Serious: No
  Sender: FDA-Public Use
  Company Number: US-BIOGENIDEC-2011BI042528

PATIENT
  Sex: Female

DRUGS (4)
  1. TYSABRI [Suspect]
     Indication: MULTIPLE SCLEROSIS
     Route: 042
     Dates: start: 20110512
  2. TYSABRI [Suspect]
     Route: 042
     Dates: start: 20100505, end: 20101116
  3. AVONEX [Concomitant]
     Indication: MULTIPLE SCLEROSIS
     Route: 030
  4. TYSABRI [Suspect]
     Route: 042
     Dates: start: 20090101

REACTIONS (6)
  - MIGRAINE [None]
  - INFUSION SITE EXTRAVASATION [None]
  - PYREXIA [None]
  - VIRAL INFECTION [None]
  - NASOPHARYNGITIS [None]
  - MALAISE [None]
